FAERS Safety Report 10069768 (Version 1)
Quarter: 2014Q2

REPORT INFORMATION
  Report Type: Spontaneous
  Country: US (occurrence: US)
  Receive Date: 20140410
  Receipt Date: 20140410
  Transmission Date: 20141212
  Serious: No
  Sender: FDA-Public Use
  Company Number: US-PFIZER INC-2014097216

PATIENT
  Age: 56 Year
  Sex: Male

DRUGS (4)
  1. XALKORI [Suspect]
     Indication: LUNG NEOPLASM MALIGNANT
     Dosage: 250 MG, UNK
     Dates: start: 20140318
  2. DEXAMETHASONE [Concomitant]
  3. BISMUTH SUBSALICYLATE [Concomitant]
  4. VERAPAMIL HCL [Concomitant]
     Dosage: UNK

REACTIONS (2)
  - Deep vein thrombosis [Unknown]
  - Fatigue [Unknown]
